FAERS Safety Report 6307567-7 (Version None)
Quarter: 2009Q3

REPORT INFORMATION
  Report Type: 
  Country: None (occurrence: None)
  Receive Date: 20090811
  Receipt Date: 20090729
  Transmission Date: 20100115
  Serious: Yes (Hospitalization)
  Sender: FDA-Public Use
  Company Number: 2008AL006585

PATIENT
  Age: 56 Year
  Sex: Male
  Weight: 90.7194 kg

DRUGS (5)
  1. DIGOXIN [Suspect]
     Dosage: 0.25MG, DAILY, PO
     Route: 048
  2. PRAVACHOL [Concomitant]
  3. TENORMIN [Concomitant]
  4. SIMVASTATIN [Concomitant]
  5. VYTORIN [Concomitant]

REACTIONS (10)
  - ABDOMINAL PAIN [None]
  - ATRIAL FIBRILLATION [None]
  - DIARRHOEA [None]
  - DYSPNOEA [None]
  - HYPERCHOLESTEROLAEMIA [None]
  - INTESTINAL MASS [None]
  - MULTIPLE INJURIES [None]
  - MUSCLE SPASMS [None]
  - MUSCULOSKELETAL PAIN [None]
  - PAIN [None]
